FAERS Safety Report 6601466-9 (Version None)
Quarter: 2010Q1

REPORT INFORMATION
  Report Type: 
  Country: None (occurrence: None)
  Receive Date: 20100225
  Receipt Date: 20100219
  Transmission Date: 20100710
  Serious: Yes (Death, Other)
  Sender: FDA-Public Use
  Company Number: ES-CELGENEUS-144-21880-10021789

PATIENT
  Age: 64 Year
  Sex: Male

DRUGS (2)
  1. REVLIMID [Suspect]
     Indication: MULTIPLE MYELOMA
     Route: 048
  2. BORTEZOMIB [Concomitant]
     Indication: MULTIPLE MYELOMA
     Route: 065

REACTIONS (3)
  - DEATH [None]
  - HAEMOPTYSIS [None]
  - MULTIPLE MYELOMA [None]
